FAERS Safety Report 7603957-0 (Version None)
Quarter: 2011Q3

REPORT INFORMATION
  Report Type: 
  Country: None (occurrence: None)
  Receive Date: 20110712
  Receipt Date: 20110704
  Transmission Date: 20111222
  Serious: Yes (Other)
  Sender: FDA-Public Use
  Company Number: US-ROCHE-787595

PATIENT

DRUGS (6)
  1. AMPICILLIN SODIUM [Interacting]
     Route: 065
  2. ALTEPLASE [Interacting]
     Dosage: DRUG NAME REPORTED AS: ALTEPLACE.
     Route: 065
  3. KETOROLAC TROMETHAMINE [Suspect]
     Route: 042
  4. GENTAMICIN [Interacting]
     Route: 065
  5. FUROSEMIDE [Interacting]
     Route: 065
  6. HYDROCORTISONE [Interacting]
     Route: 065

REACTIONS (2)
  - HAEMORRHAGE [None]
  - DRUG INTERACTION [None]
